FAERS Safety Report 17196772 (Version 5)
Quarter: 2020Q2

REPORT INFORMATION
  Report Type: Report from Study
  Country: US (occurrence: US)
  Receive Date: 20191224
  Receipt Date: 20200424
  Transmission Date: 20200713
  Serious: Yes (Hospitalization)
  Sender: FDA-Public Use
  Company Number: US-ACTELION-A-NJ2019-191429

PATIENT
  Sex: Female
  Weight: 89.8 kg

DRUGS (9)
  1. REMODULIN [Suspect]
     Active Substance: TREPROSTINIL
     Indication: PRODUCT USED FOR UNKNOWN INDICATION
     Dosage: 23 NG/KG, PER MIN
     Route: 065
  2. REMODULIN [Suspect]
     Active Substance: TREPROSTINIL
     Dosage: 4 NG/KG, PER MIN
     Route: 065
     Dates: start: 201906
  3. REMODULIN [Suspect]
     Active Substance: TREPROSTINIL
     Dosage: UNK
     Route: 042
  4. OPSUMIT [Suspect]
     Active Substance: MACITENTAN
     Indication: PULMONARY ARTERIAL HYPERTENSION
     Dosage: 10 MG, QD
     Route: 048
     Dates: start: 201904
  5. REMODULIN [Suspect]
     Active Substance: TREPROSTINIL
     Dosage: UNK
     Route: 058
     Dates: start: 201902
  6. REMODULIN [Suspect]
     Active Substance: TREPROSTINIL
     Dosage: UNK
     Route: 058
  7. BUMEX [Suspect]
     Active Substance: BUMETANIDE
     Indication: PULMONARY ARTERIAL HYPERTENSION
     Dosage: 4 MG, QD
     Route: 048
     Dates: start: 201903
  8. SILDENAFIL. [Concomitant]
     Active Substance: SILDENAFIL
  9. REMODULIN [Suspect]
     Active Substance: TREPROSTINIL
     Dosage: 16 NG/KG, PER MIN
     Route: 065

REACTIONS (16)
  - Migraine [Unknown]
  - Fatigue [Unknown]
  - Vomiting [Unknown]
  - Anxiety [Unknown]
  - Oedema peripheral [Recovering/Resolving]
  - Hospitalisation [Unknown]
  - Pruritus [Not Recovered/Not Resolved]
  - Infusion site infection [Unknown]
  - Pulmonary arterial hypertension [Unknown]
  - Panic attack [Unknown]
  - Weight increased [Recovering/Resolving]
  - Adverse drug reaction [Unknown]
  - Renal failure [Unknown]
  - Dialysis [Unknown]
  - Dyspnoea [Unknown]
  - Dyspnoea exertional [Recovering/Resolving]
